FAERS Safety Report 5963566-6 (Version None)
Quarter: 2008Q4

REPORT INFORMATION
  Report Type: 
  Country: None (occurrence: None)
  Receive Date: 20081124
  Receipt Date: 20081119
  Transmission Date: 20090506
  Serious: Yes (Life-Threatening, Hospitalization)
  Sender: FDA-Public Use
  Company Number: DE-ASTRAZENECA-2008PK02524

PATIENT
  Age: 21999 Day
  Sex: Female

DRUGS (2)
  1. PROPOFOL [Suspect]
     Indication: SEDATION
     Dosage: SINGLE DOSE
     Route: 042
     Dates: start: 20050117
  2. RISPERIDONE [Concomitant]
     Indication: PSYCHOTIC DISORDER
     Route: 048

REACTIONS (6)
  - ACUTE PSYCHOSIS [None]
  - ACUTE RESPIRATORY DISTRESS SYNDROME [None]
  - DISSEMINATED INTRAVASCULAR COAGULATION [None]
  - PRODUCT CONTAMINATION [None]
  - RETINAL EXUDATES [None]
  - SEPSIS [None]
